FAERS Safety Report 5816376-4 (Version None)
Quarter: 2008Q3

REPORT INFORMATION
  Report Type: 
  Country: None (occurrence: None)
  Receive Date: 20080721
  Receipt Date: 20080317
  Transmission Date: 20090109
  Serious: No
  Sender: FDA-Public Use
  Company Number: US-BAUSCH-2008BL001218

PATIENT
  Age: 44 Year
  Sex: Female

DRUGS (3)
  1. OPCON-A [Suspect]
     Indication: EYE ALLERGY
     Route: 047
     Dates: start: 19980318, end: 20060318
  2. CLARITIN /USA/ [Concomitant]
     Indication: HYPERSENSITIVITY
     Route: 048
  3. ALBUTEROL [Concomitant]
     Indication: ASTHMA
     Route: 049

REACTIONS (1)
  - DRUG EFFECT DECREASED [None]
